FAERS Safety Report 5121051-8 (Version None)
Quarter: 2006Q4

REPORT INFORMATION
  Report Type: 
  Country: None (occurrence: None)
  Receive Date: 20061002
  Receipt Date: 20060918
  Transmission Date: 20070319
  Serious: Yes (Death)
  Sender: FDA-Public Use
  Company Number: 230429

PATIENT
  Age: 73 Year
  Sex: Male

DRUGS (8)
  1. RITUXIMAB (RITUXIMAB) CONC FOR SOLUTION FOR INFUSION [Suspect]
     Indication: DRUG USE FOR UNKNOWN INDICATION
     Dosage: 800 MG, INTRAVENOUS
     Route: 042
     Dates: start: 19990728, end: 19990818
  2. CYTARABINE [Concomitant]
  3. DAUNORUBICIN HYDROCHLORIDE [Concomitant]
  4. ALLOPURINOL [Concomitant]
  5. HYDROXYCARBAMIDE (HYDROXYUREA) [Concomitant]
  6. CHLOROTHIAZIDE [Concomitant]
  7. ACETAMINOPHEN [Concomitant]
  8. MORPHINE SULFATE INJ [Concomitant]

REACTIONS (2)
  - ACUTE MYELOID LEUKAEMIA [None]
  - MYELODYSPLASTIC SYNDROME [None]
